FAERS Safety Report 13096591 (Version 1)
Quarter: 2017Q1

REPORT INFORMATION
  Report Type: Spontaneous
  Country: None (occurrence: US)
  Receive Date: 20170109
  Receipt Date: 20170109
  Transmission Date: 20170428
  Serious: Yes (Other)
  Sender: FDA-Public Use
  Company Number: US-GRANULES INDIA LIMITED-1061781

PATIENT
  Age: 54 Year
  Sex: Male
  Weight: 122.27 kg

DRUGS (2)
  1. B-12, B-6, FOLIC ACID, FISH OIL, C5 TUMERIC [Concomitant]
  2. METFORMIN HYDROCHLORIDE. [Suspect]
     Active Substance: METFORMIN HYDROCHLORIDE
     Indication: DIABETES MELLITUS

REACTIONS (1)
  - Lactic acidosis [Unknown]
